FAERS Safety Report 5506602-3 (Version None)
Quarter: 2007Q4

REPORT INFORMATION
  Report Type: 
  Country: None (occurrence: None)
  Receive Date: 20071105
  Receipt Date: 20071024
  Transmission Date: 20080405
  Serious: Yes (Other)
  Sender: FDA-Public Use
  Company Number: JP-ROCHE-526269

PATIENT
  Age: 12 Year
  Sex: Male
  Weight: 40 kg

DRUGS (2)
  1. TAMIFLU [Suspect]
     Route: 048
     Dates: start: 20060202, end: 20070202
  2. TAMIFLU [Suspect]
     Route: 048
     Dates: start: 20070203

REACTIONS (1)
  - ABNORMAL BEHAVIOUR [None]
